FAERS Safety Report 8033062-3 (Version None)
Quarter: 2012Q1

REPORT INFORMATION
  Report Type: 
  Country: None (occurrence: None)
  Receive Date: 20120110
  Receipt Date: 20120104
  Transmission Date: 20120608
  Serious: Yes (Other)
  Sender: FDA-Public Use
  Company Number: US-PFIZER INC-2011310753

PATIENT
  Sex: Female
  Weight: 56.689 kg

DRUGS (5)
  1. ENALAPRIL [Concomitant]
     Indication: HYPERTENSION
     Dosage: UNK
     Route: 048
  2. METOPROLOL [Concomitant]
     Dosage: 50 MG, 2X/DAY
  3. ZYVOX [Suspect]
     Indication: KIDNEY INFECTION
     Dosage: 600 MG, 2X/DAY
     Route: 048
     Dates: start: 20111212, end: 20111221
  4. ZYVOX [Suspect]
     Indication: URINARY TRACT INFECTION
  5. METOPROLOL [Concomitant]
     Indication: HYPERTENSION
     Dosage: ORAL TABLET TWO TIMES A DAY
     Route: 048

REACTIONS (8)
  - SWOLLEN TONGUE [None]
  - MALAISE [None]
  - BED REST [None]
  - DRUG INEFFECTIVE [None]
  - LIP SWELLING [None]
  - HYPOPHAGIA [None]
  - URINARY TRACT INFECTION [None]
  - PHARYNGEAL OEDEMA [None]
